FAERS Safety Report 8950573 (Version 1)
Quarter: 2012Q4

REPORT INFORMATION
  Report Type: Spontaneous
  Country: GB (occurrence: None)
  Receive Date: 20121128
  Receipt Date: 20121128
  Transmission Date: 20130627
  Serious: Yes (Other)
  Sender: FDA-Public Use
  Company Number: ABR_00713_2012

PATIENT

DRUGS (3)
  1. ERYTHROMYCIN [Suspect]
     Dosage: (DF Transplacental)
     Route: 064
     Dates: start: 20121030, end: 20121105
  2. OLBAS /07476601/ [Concomitant]
  3. PARACETAMOL [Concomitant]

REACTIONS (3)
  - Foetal heart rate decreased [None]
  - Foetal hypokinesia [None]
  - Maternal drugs affecting foetus [None]
